FAERS Safety Report 9598694 (Version 1)
Quarter: 2013Q4

REPORT INFORMATION
  Report Type: Spontaneous
  Country: US (occurrence: US)
  Receive Date: 20131004
  Receipt Date: 20131004
  Transmission Date: 20140711
  Serious: No
  Sender: FDA-Public Use
  Company Number: US-AMGEN-USASP2013025495

PATIENT
  Age: 45 Year
  Sex: Female
  Weight: 99.77 kg

DRUGS (10)
  1. ENBREL [Suspect]
     Indication: PRODUCT USED FOR UNKNOWN INDICATION
     Dosage: 25 MG, 2 TIMES/WK
     Route: 058
  2. METOLAZONE [Concomitant]
     Dosage: 10 MG, UNK
  3. METHOTREXATE [Concomitant]
     Dosage: 2.5 MG, UNK
  4. OXYBUTYNIN [Concomitant]
     Dosage: 5 MG, UNK
  5. FOLIC ACID [Concomitant]
     Dosage: 20 MG, UNK
  6. POTASSIUM CHLORIDE [Concomitant]
     Dosage: 8 MEQ, UNK
  7. OMEPRAZOLE [Concomitant]
     Dosage: 40 MG, UNK
  8. NAPROXEN [Concomitant]
     Dosage: 250 MG, UNK
  9. CALCIUM [Concomitant]
     Dosage: 500
  10. FERROUS SULFATE [Concomitant]
     Dosage: UNK

REACTIONS (4)
  - Nasopharyngitis [Unknown]
  - Bronchitis [Unknown]
  - Sinusitis [Unknown]
  - Blood iron decreased [Unknown]
